FAERS Safety Report 7759318-7 (Version None)
Quarter: 2011Q3

REPORT INFORMATION
  Report Type: 
  Country: None (occurrence: None)
  Receive Date: 20110919
  Receipt Date: 20110908
  Transmission Date: 20111222
  Serious: Yes (Hospitalization)
  Sender: FDA-Public Use
  Company Number: CH-JNJFOC-20110901560

PATIENT
  Sex: Male
  Weight: 65 kg

DRUGS (5)
  1. ABIRATERONE [Suspect]
     Route: 048
  2. ABIRATERONE [Suspect]
     Indication: PROSTATE CANCER METASTATIC
     Route: 048
     Dates: start: 20110826
  3. PREDNISONE [Suspect]
     Indication: PROSTATE CANCER
     Route: 048
     Dates: start: 20101201
  4. DURAGESIC-100 [Concomitant]
     Route: 062
     Dates: start: 20110817
  5. OPIATES [Suspect]
     Indication: PRODUCT USED FOR UNKNOWN INDICATION
     Route: 065

REACTIONS (2)
  - VOMITING [None]
  - NAUSEA [None]
